FAERS Safety Report 4883217-1 (Version None)
Quarter: 2006Q1

REPORT INFORMATION
  Report Type: 
  Country: None (occurrence: None)
  Receive Date: 20060117
  Receipt Date: 20060117
  Transmission Date: 20060701
  Serious: No
  Sender: FDA-Public Use
  Company Number: None

PATIENT
  Age: 76 Year
  Sex: Female

DRUGS (2)
  1. NORTRIPTYLINE;;;ANTIDEPRESSANTS;CAPSULES;; [Suspect]
     Indication: MAJOR DEPRESSION
     Dosage: ORAL;;50.0 MILLIGRAM
     Route: 048
     Dates: start: 20041110, end: 20051004
  2. FLUOXETINE [Concomitant]

REACTIONS (5)
  - CONFUSIONAL STATE [None]
  - CONSTIPATION [None]
  - DISORIENTATION [None]
  - DRUG LEVEL INCREASED [None]
  - DRY MOUTH [None]
